FAERS Safety Report 8762342 (Version 1)
Quarter: 2012Q4

REPORT INFORMATION
  Report Type: 
  Country: VE (occurrence: VE)
  Receive Date: 20120830
  Receipt Date: 20120830
  Transmission Date: 20130627
  Serious: Yes (Other)
  Sender: FDA-Public Use
  Company Number: VE-PFIZER INC-2012212520

PATIENT
  Age: 43 Year
  Sex: Female

DRUGS (3)
  1. LIPITOR [Suspect]
     Indication: ARTERIAL THROMBOSIS LIMB
     Dosage: 40 mg, 1x/day
     Route: 048
     Dates: start: 201204
  2. WARFARIN [Concomitant]
     Indication: ARTERIAL THROMBOSIS LIMB
     Dosage: UNK
     Dates: start: 201204
  3. LEVOTHYROXINE SODIUM [Concomitant]
     Indication: HYPOTHYROIDISM
     Dosage: 100 mg/g, 1x/day
     Route: 048

REACTIONS (7)
  - Photosensitivity reaction [Not Recovered/Not Resolved]
  - Pyrexia [Recovered/Resolved]
  - Tachycardia [Not Recovered/Not Resolved]
  - Discomfort [Not Recovered/Not Resolved]
  - Myalgia [Not Recovered/Not Resolved]
  - Arthralgia [Not Recovered/Not Resolved]
  - Palpitations [Not Recovered/Not Resolved]
